FAERS Safety Report 15932934 (Version 3)
Quarter: 2019Q2

REPORT INFORMATION
  Report Type: Spontaneous
  Country: US (occurrence: US)
  Receive Date: 20190207
  Receipt Date: 20190402
  Transmission Date: 20190711
  Serious: No
  Sender: FDA-Public Use
  Company Number: US-BAYER-2019-025238

PATIENT
  Age: 30 Year
  Sex: Female
  Weight: 64 kg

DRUGS (4)
  1. MIRENA [Suspect]
     Active Substance: LEVONORGESTREL
     Indication: CONTRACEPTION
  2. MIRENA [Suspect]
     Active Substance: LEVONORGESTREL
     Indication: CONTRACEPTION
     Dosage: 20 MCG/24HR, CONT
     Route: 015
     Dates: start: 20190125, end: 20190131
  3. PRENATAL VITAMINS [MINERALS NOS;VITAMINS NOS] [Concomitant]
     Active Substance: MINERALS\VITAMINS
     Route: 048
  4. FISH OIL OMEGA 3 [Concomitant]
     Active Substance: FISH OIL
     Dosage: 2 G, QD
     Route: 048

REACTIONS (6)
  - Discomfort [Recovered/Resolved]
  - Medical device site discomfort [None]
  - Vaginal haemorrhage [None]
  - Dysmenorrhoea [None]
  - Device expulsion [Recovered/Resolved]
  - Device issue [None]

NARRATIVE: CASE EVENT DATE: 20190126
